FAERS Safety Report 7851904-9 (Version None)
Quarter: 2011Q3

REPORT INFORMATION
  Report Type: 
  Country: None (occurrence: None)
  Receive Date: 20110912
  Receipt Date: 20110517
  Transmission Date: 20111222
  Serious: No
  Sender: FDA-Public Use
  Company Number: TH-2011-00151

PATIENT
  Age: 55 Year
  Sex: Male

DRUGS (3)
  1. STEROIDS (CORTICOSTEROID NOS) [Concomitant]
  2. ANABOLIC STEROIDS (CORTICOSTEROID NOS) [Concomitant]
  3. EGRIFTA [Suspect]
     Indication: HIV WASTING SYNDROME
     Dosage: 1 IN 1 D
     Dates: start: 20110201, end: 20110505

REACTIONS (3)
  - MUSCLE ATROPHY [None]
  - BLOOD DISORDER [None]
  - BLOOD VISCOSITY INCREASED [None]
